FAERS Safety Report 12497462 (Version 2)
Quarter: 2016Q3

REPORT INFORMATION
  Report Type: Spontaneous
  Country: US (occurrence: US)
  Receive Date: 20160624
  Receipt Date: 20160812
  Transmission Date: 20161109
  Serious: No
  Sender: FDA-Public Use
  Company Number: US-ASTRAZENECA-2016SE58128

PATIENT
  Sex: Male

DRUGS (2)
  1. UNKNOWN [Concomitant]
     Active Substance: UNSPECIFIED INGREDIENT
  2. BYDUREON [Suspect]
     Active Substance: EXENATIDE
     Dosage: 2 MG 4 COUNT VIAL
     Route: 058
     Dates: start: 20160520

REACTIONS (2)
  - Needle issue [Unknown]
  - Haemorrhage [Unknown]
